FAERS Safety Report 8058039-3 (Version None)
Quarter: 2012Q1

REPORT INFORMATION
  Report Type: 
  Country: None (occurrence: None)
  Receive Date: 20120120
  Receipt Date: 20120118
  Transmission Date: 20120608
  Serious: Yes (Other)
  Sender: FDA-Public Use
  Company Number: US-BAYER-2012-006121

PATIENT
  Age: 29 Year
  Sex: Female

DRUGS (3)
  1. MAGNEVIST [Suspect]
     Indication: MULTIPLE SCLEROSIS
  2. MAGNEVIST [Suspect]
     Indication: NUCLEAR MAGNETIC RESONANCE IMAGING
     Dosage: 10 ML, ONCE
     Route: 042
     Dates: start: 20120117, end: 20120117
  3. MAGNEVIST [Suspect]
     Indication: DEMYELINATION

REACTIONS (4)
  - THROAT IRRITATION [None]
  - WHEEZING [None]
  - RASH [None]
  - COUGH [None]
